FAERS Safety Report 8435640-6 (Version None)
Quarter: 2012Q2

REPORT INFORMATION
  Report Type: 
  Country: None (occurrence: None)
  Receive Date: 20120614
  Receipt Date: 20120409
  Transmission Date: 20120825
  Serious: Yes (Other)
  Sender: FDA-Public Use
  Company Number: BR-PFIZER INC-2012089077

PATIENT
  Sex: Female
  Weight: 60 kg

DRUGS (4)
  1. NEURONTIN [Suspect]
     Indication: NEURITIS CRANIAL
     Dosage: 300 MG, 2X/DAY
     Route: 048
     Dates: start: 20090801, end: 20100801
  2. NEURONTIN [Suspect]
     Dosage: UNK
     Route: 048
     Dates: start: 20120322, end: 20120323
  3. NEURONTIN [Suspect]
     Dosage: 300 MG, 3X/DAY
     Route: 048
     Dates: start: 20120324
  4. LEVOXYL [Concomitant]
     Indication: THYROID DISORDER
     Dosage: UNK

REACTIONS (3)
  - MUSCLE TWITCHING [None]
  - DRUG INEFFECTIVE [None]
  - ACTIVITIES OF DAILY LIVING IMPAIRED [None]
